FAERS Safety Report 8442859-7 (Version None)
Quarter: 2012Q2

REPORT INFORMATION
  Report Type: 
  Country: None (occurrence: None)
  Receive Date: 20120615
  Receipt Date: 20120604
  Transmission Date: 20120825
  Serious: Yes (Disabling, Other)
  Sender: FDA-Public Use
  Company Number: US-SANOFI-AVENTIS-2012SA039856

PATIENT
  Age: 73 Year
  Sex: Female

DRUGS (1)
  1. APIDRA [Suspect]
     Dosage: DOSE:6 UNIT(S)
     Route: 058
     Dates: start: 20100101

REACTIONS (2)
  - UPPER LIMB FRACTURE [None]
  - NERVE COMPRESSION [None]
